FAERS Safety Report 16127522 (Version 1)
Quarter: 2019Q1

REPORT INFORMATION
  Report Type: Spontaneous
  Country: US (occurrence: US)
  Receive Date: 20190328
  Receipt Date: 20190328
  Transmission Date: 20190418
  Serious: No
  Sender: FDA-Public Use
  Company Number: US-PFIZER INC-2019129382

PATIENT
  Age: 59 Year
  Sex: Male

DRUGS (1)
  1. SOMAVERT [Suspect]
     Active Substance: PEGVISOMANT
     Indication: ACROMEGALY
     Dosage: 20 MG, DAILY
     Route: 058
     Dates: start: 20190202

REACTIONS (5)
  - Fatigue [Unknown]
  - Arthralgia [Unknown]
  - Pain [Unknown]
  - Back pain [Unknown]
  - Product dose omission [Unknown]
